FAERS Safety Report 25666191 (Version 1)
Quarter: 2025Q3

REPORT INFORMATION
  Report Type: Spontaneous
  Country: US (occurrence: US)
  Receive Date: 20250811
  Receipt Date: 20250811
  Transmission Date: 20251020
  Serious: Yes (Hospitalization, Other)
  Sender: SLATE RUN
  Company Number: US-SLATERUN-2025SRLIT00148

PATIENT
  Age: 70 Year
  Sex: Male

DRUGS (1)
  1. ACYCLOVIR [Suspect]
     Active Substance: ACYCLOVIR
     Indication: Herpes zoster meningoencephalitis
     Route: 042

REACTIONS (2)
  - Inappropriate antidiuretic hormone secretion [Recovered/Resolved]
  - Condition aggravated [Recovered/Resolved]
